FAERS Safety Report 25711616 (Version 5)
Quarter: 2025Q4

REPORT INFORMATION
  Report Type: Spontaneous
  Country: US (occurrence: US)
  Receive Date: 20250821
  Receipt Date: 20251112
  Transmission Date: 20260117
  Serious: No
  Sender: GILEAD
  Company Number: US-GILEAD-2025-0725478

PATIENT
  Age: 50 Year
  Sex: Male

DRUGS (2)
  1. YEZTUGO [Suspect]
     Active Substance: LENACAPAVIR SODIUM
     Indication: Prophylaxis against HIV infection
     Dosage: INJECT 927 MG (3 ML TOTAL) UNDER THE SKIN IN 2 SEPARATE SITES ON DAY 1 THEN EVERY 6 MONTHS AS INSTRU
     Route: 058
     Dates: start: 20250819
  2. YEZTUGO [Suspect]
     Active Substance: LENACAPAVIR SODIUM
     Indication: Prophylaxis against HIV infection
     Dosage: (TABLET FORMULATION)
     Route: 065

REACTIONS (5)
  - Injection site discharge [Recovered/Resolved]
  - Injection site pain [Recovered/Resolved]
  - Injection site nodule [Unknown]
  - Accidental underdose [Recovered/Resolved]
  - Product label issue [Unknown]

NARRATIVE: CASE EVENT DATE: 20250819
